FAERS Safety Report 7705605-8 (Version None)
Quarter: 2011Q3

REPORT INFORMATION
  Report Type: 
  Country: None (occurrence: None)
  Receive Date: 20110824
  Receipt Date: 20110810
  Transmission Date: 20111222
  Serious: No
  Sender: FDA-Public Use
  Company Number: US-B.I. PHARMACEUTICALS,INC./RIDGEFIELD-2011-BP-16672BP

PATIENT
  Sex: Female

DRUGS (10)
  1. BENAZEPRIL HYDROCHLORIDE [Concomitant]
  2. ADVAIR DISKUS 100/50 [Concomitant]
  3. METOPROLOL TARTRATE [Concomitant]
     Indication: HYPERTENSION
     Route: 048
  4. PRADAXA [Suspect]
     Indication: ATRIAL FIBRILLATION
     Dosage: 300 MG
     Route: 048
     Dates: start: 20110312
  5. CARTIA XT [Concomitant]
     Indication: HYPERTENSION
     Dosage: 180 MG
     Route: 048
  6. L-LYSINE [Concomitant]
  7. SALSALATE [Concomitant]
     Indication: ARTHRITIS
     Dosage: 1500 MG
     Route: 048
  8. CALCIUM CARBONATE [Concomitant]
     Indication: SUPPLEMENTATION THERAPY
     Route: 048
  9. PRILOSEC [Concomitant]
     Dosage: 20 MG
     Route: 048
  10. MULTI-VITAMIN [Concomitant]

REACTIONS (2)
  - FREQUENT BOWEL MOVEMENTS [None]
  - ABDOMINAL DISCOMFORT [None]
